FAERS Safety Report 13687782 (Version 1)
Quarter: 2017Q2

REPORT INFORMATION
  Report Type: Spontaneous
  Country: US (occurrence: US)
  Receive Date: 20170623
  Receipt Date: 20170623
  Transmission Date: 20170830
  Serious: Yes (Disabling)
  Sender: FDA-Public Use
  Company Number: None

PATIENT
  Age: 60 Year
  Sex: Female
  Weight: 83.25 kg

DRUGS (5)
  1. MAGNESIUM [Concomitant]
     Active Substance: MAGNESIUM
  2. VALIUM [Suspect]
     Active Substance: DIAZEPAM
     Indication: DRUG WITHDRAWAL MAINTENANCE THERAPY
     Dosage: ?          QUANTITY:2 TABLET(S);?
     Route: 048
     Dates: start: 20150330
  3. KLONOPIN [Suspect]
     Active Substance: CLONAZEPAM
     Indication: INSOMNIA
     Dosage: QUANTITY:1 TABLET(S);?
     Route: 048
     Dates: start: 20080601, end: 20150329
  4. ZOLOFT [Concomitant]
     Active Substance: SERTRALINE HYDROCHLORIDE
  5. KLONOPIN [Suspect]
     Active Substance: CLONAZEPAM
     Indication: ANXIETY
     Dosage: QUANTITY:1 TABLET(S);?
     Route: 048
     Dates: start: 20080601, end: 20150329

REACTIONS (33)
  - Anxiety [None]
  - Drug tolerance [None]
  - Panic attack [None]
  - Alopecia [None]
  - Hallucination [None]
  - Prescribed overdose [None]
  - Drug ineffective [None]
  - Nervous system disorder [None]
  - Fatigue [None]
  - Nightmare [None]
  - Hypophagia [None]
  - Suicidal ideation [None]
  - Bedridden [None]
  - Anger [None]
  - Quality of life decreased [None]
  - Fear [None]
  - Constipation [None]
  - Pain [None]
  - Headache [None]
  - Insomnia [None]
  - Withdrawal syndrome [None]
  - Hyperacusis [None]
  - Social problem [None]
  - Depression [None]
  - Diarrhoea [None]
  - Loss of employment [None]
  - Feeling of despair [None]
  - Impaired self-care [None]
  - Loss of personal independence in daily activities [None]
  - Abdominal pain upper [None]
  - Tremor [None]
  - Intrusive thoughts [None]
  - Cognitive disorder [None]

NARRATIVE: CASE EVENT DATE: 20130605
